FAERS Safety Report 5702792-8 (Version None)
Quarter: 2008Q2

REPORT INFORMATION
  Report Type: 
  Country: None (occurrence: None)
  Receive Date: 20080411
  Receipt Date: 20080409
  Transmission Date: 20081010
  Serious: Yes (Hospitalization)
  Sender: FDA-Public Use
  Company Number: D0056871A

PATIENT
  Age: 22 Year
  Sex: Female
  Weight: 55 kg

DRUGS (7)
  1. ZYBAN [Suspect]
     Route: 048
     Dates: start: 20080408, end: 20080408
  2. CIPROFLOXACIN [Suspect]
     Route: 048
     Dates: start: 20080408, end: 20080408
  3. COTRIM [Suspect]
     Route: 048
     Dates: start: 20080408, end: 20080408
  4. IBUPROFEN [Suspect]
     Route: 048
     Dates: start: 20080408, end: 20080408
  5. NAPROXEN [Suspect]
     Route: 048
     Dates: start: 20080408, end: 20080408
  6. PARACETAMOL [Suspect]
     Dosage: 500MG SEE DOSAGE TEXT
     Route: 048
     Dates: start: 20080408, end: 20080408
  7. ANALGESIC (NAME NOT KNOWN) [Suspect]
     Route: 048
     Dates: start: 20080408, end: 20080408

REACTIONS (2)
  - INTENTIONAL OVERDOSE [None]
  - SUICIDE ATTEMPT [None]
